FAERS Safety Report 7214763-3 (Version None)
Quarter: 2011Q1

REPORT INFORMATION
  Report Type: 
  Country: None (occurrence: None)
  Receive Date: 20110107
  Receipt Date: 20100127
  Transmission Date: 20110831
  Serious: No
  Sender: FDA-Public Use
  Company Number: A0841954A

PATIENT
  Sex: Female

DRUGS (2)
  1. FENOFIBRATE [Concomitant]
  2. LOVAZA [Suspect]
     Dosage: 4G PER DAY
     Route: 048
     Dates: start: 20091211

REACTIONS (1)
  - DIARRHOEA [None]
